FAERS Safety Report 4445854-8 (Version None)
Quarter: 2004Q3

REPORT INFORMATION
  Report Type: 
  Country: None (occurrence: None)
  Receive Date: 20040903
  Receipt Date: 20040823
  Transmission Date: 20050211
  Serious: Yes (Hospitalization)
  Sender: FDA-Public Use
  Company Number: 2004-118191-NL

PATIENT
  Age: 79 Year
  Sex: Female

DRUGS (4)
  1. MIRTAZAPINE [Suspect]
     Indication: DEPRESSION
     Dosage: 15 MG QD ORAL
     Route: 048
     Dates: start: 20030301, end: 20040401
  2. ALPRAZOLAM [Concomitant]
  3. MEPRONIZINE [Concomitant]
  4. DIALGIREX [Concomitant]

REACTIONS (5)
  - AFFECTIVE DISORDER [None]
  - ANOREXIA [None]
  - HALLUCINATION [None]
  - HYPONATRAEMIA [None]
  - PERSECUTORY DELUSION [None]
